FAERS Safety Report 4625670-4 (Version None)
Quarter: 2005Q1

REPORT INFORMATION
  Report Type: 
  Country: None (occurrence: None)
  Receive Date: 20050330
  Receipt Date: 20050310
  Transmission Date: 20050727
  Serious: Yes (Death, Other)
  Sender: FDA-Public Use
  Company Number: EWC050242878

PATIENT
  Sex: Male
  Weight: 72 kg

DRUGS (10)
  1. XIGRIS [Suspect]
     Indication: SEPSIS
     Dosage: 24 UG/KG/HR
     Dates: start: 20050222, end: 20050223
  2. LINEZOLID [Concomitant]
  3. INSULIN [Concomitant]
  4. ALBUMIN (HUMAN) [Concomitant]
  5. DIGOXIN [Concomitant]
  6. CARVEDILOL [Concomitant]
  7. VALSARTAN [Concomitant]
  8. ACETAMINOPHEN [Concomitant]
  9. TRAMADOL HCL [Concomitant]
  10. ALLOPURINOL [Concomitant]

REACTIONS (17)
  - ARRHYTHMIA [None]
  - BLOOD CREATININE INCREASED [None]
  - CARDIAC ARREST [None]
  - CARDIOVASCULAR DISORDER [None]
  - CIRCULATORY COLLAPSE [None]
  - CONGESTIVE CARDIOMYOPATHY [None]
  - GASTROINTESTINAL DISORDER [None]
  - HAEMATEMESIS [None]
  - HAEMOGLOBIN DECREASED [None]
  - HYPOVOLAEMIC SHOCK [None]
  - METABOLIC DISORDER [None]
  - MULTI-ORGAN FAILURE [None]
  - MYOCARDIAL ISCHAEMIA [None]
  - RENAL FAILURE ACUTE [None]
  - RESPIRATORY FAILURE [None]
  - THERAPY NON-RESPONDER [None]
  - WHITE BLOOD CELL COUNT INCREASED [None]
